FAERS Safety Report 25220059 (Version 1)
Quarter: 2025Q2

REPORT INFORMATION
  Report Type: Other
  Country: FR (occurrence: FR)
  Receive Date: 20250421
  Receipt Date: 20250421
  Transmission Date: 20250717
  Serious: Yes (Hospitalization)
  Sender: ZYDUS PHARM
  Company Number: None

PATIENT

DRUGS (7)
  1. BACLOFEN [Suspect]
     Active Substance: BACLOFEN
     Indication: Pain
     Route: 048
     Dates: end: 20250214
  2. BACLOFEN [Suspect]
     Active Substance: BACLOFEN
     Route: 048
     Dates: start: 20250215
  3. DULOXETINE [Suspect]
     Active Substance: DULOXETINE
     Indication: Product used for unknown indication
     Route: 048
     Dates: end: 20250214
  4. TRAMADOL [Suspect]
     Active Substance: TRAMADOL
     Indication: Pain
     Route: 048
     Dates: end: 20250214
  5. TRAMADOL [Suspect]
     Active Substance: TRAMADOL
     Route: 048
     Dates: start: 20250215
  6. PREGABALIN [Suspect]
     Active Substance: PREGABALIN
     Indication: Pain
     Route: 048
     Dates: end: 20250214
  7. PREGABALIN [Suspect]
     Active Substance: PREGABALIN
     Route: 048
     Dates: start: 20250215

REACTIONS (2)
  - Altered state of consciousness [Recovered/Resolved]
  - Confusional state [Recovered/Resolved]

NARRATIVE: CASE EVENT DATE: 20250210
